FAERS Safety Report 4342666-0 (Version None)
Quarter: 2004Q2

REPORT INFORMATION
  Report Type: 
  Country: None (occurrence: None)
  Receive Date: 20040420
  Receipt Date: 20040420
  Transmission Date: 20050107
  Serious: Yes (Other)
  Sender: FDA-Public Use
  Company Number: None

PATIENT
  Sex: Female
  Weight: 49.8957 kg

DRUGS (3)
  1. PAXIL [Suspect]
     Indication: CONDITION AGGRAVATED
     Dosage: 20 MG 1/DAY ORAL
     Route: 048
     Dates: start: 20020401, end: 20040419
  2. PAXIL [Suspect]
     Indication: DEPRESSION
     Dosage: 20 MG 1/DAY ORAL
     Route: 048
     Dates: start: 20020401, end: 20040419
  3. PAXIL [Suspect]
     Indication: MULTIPLE SCLEROSIS
     Dosage: 20 MG 1/DAY ORAL
     Route: 048
     Dates: start: 20020401, end: 20040419

REACTIONS (8)
  - CONFUSIONAL STATE [None]
  - CRYING [None]
  - DEPRESSION [None]
  - DRUG DEPENDENCE [None]
  - DRUG WITHDRAWAL SYNDROME [None]
  - HYPERHIDROSIS [None]
  - NIGHTMARE [None]
  - PARAESTHESIA [None]
